FAERS Safety Report 22206152 (Version 1)
Quarter: 2023Q2

REPORT INFORMATION
  Report Type: Spontaneous
  Country: US (occurrence: US)
  Receive Date: 20230413
  Receipt Date: 20230413
  Transmission Date: 20230721
  Serious: No
  Sender: FDA-Public Use
  Company Number: US-GBT-020827

PATIENT
  Age: 72 Year
  Sex: Female

DRUGS (3)
  1. OXBRYTA [Suspect]
     Active Substance: VOXELOTOR
     Indication: Sickle cell disease
     Route: 048
     Dates: start: 20230306
  2. OXBRYTA [Suspect]
     Active Substance: VOXELOTOR
     Indication: Sickle cell disease
     Route: 048
     Dates: start: 202303
  3. OXBRYTA [Suspect]
     Active Substance: VOXELOTOR
     Indication: Sickle cell disease
     Route: 048
     Dates: start: 20230306

REACTIONS (5)
  - Diarrhoea [Not Recovered/Not Resolved]
  - Wrong technique in product usage process [Unknown]
  - Product use complaint [Unknown]
  - Off label use [Unknown]
  - Product dose omission issue [Unknown]

NARRATIVE: CASE EVENT DATE: 20230301
